FAERS Safety Report 13935849 (Version 1)
Quarter: 2017Q3

REPORT INFORMATION
  Report Type: Spontaneous
  Country: US (occurrence: US)
  Receive Date: 20170903
  Receipt Date: 20170903
  Transmission Date: 20171127
  Serious: Yes (Life-Threatening)
  Sender: FDA-Public Use
  Company Number: None

PATIENT
  Sex: Female
  Weight: 52.2 kg

DRUGS (4)
  1. CLARITIN [Concomitant]
     Active Substance: LORATADINE
  2. PREDNISONE. [Concomitant]
     Active Substance: PREDNISONE
  3. REMICADE [Suspect]
     Active Substance: INFLIXIMAB
     Indication: RHEUMATOID ARTHRITIS
     Dosage: OTHER FREQUENCY:EVERY 8 WEEKS;?
     Route: 042
     Dates: start: 20170214, end: 20170524
  4. IBUPROFEN. [Concomitant]
     Active Substance: IBUPROFEN

REACTIONS (2)
  - Autoimmune hepatitis [None]
  - Hepatitis acute [None]

NARRATIVE: CASE EVENT DATE: 20170524
